FAERS Safety Report 10369328 (Version 1)
Quarter: 2014Q1

REPORT INFORMATION
  Report Type: Spontaneous
  Country: US (occurrence: None)
  Receive Date: 20140306
  Receipt Date: 20140306
  Transmission Date: 20141002
  Serious: Yes (Other)
  Sender: FDA-Public Use
  Company Number: 163-21880-13091262

PATIENT
  Age: 67 Year
  Sex: Male

DRUGS (19)
  1. REVLIMID (LENALIDOMIDE) (CAPSULES) [Suspect]
     Indication: PLASMA CELL MYELOMA
     Route: 048
     Dates: start: 201009
  2. DALMANE (FLURAZEPAM HYDROCHLORIDE) [Concomitant]
  3. CALCIUM +D (OS-CAL) [Concomitant]
  4. VALTREX (VALACICLOVIR HYDROCHLORIDE) [Concomitant]
  5. VELCADE (BORTEZOMIB) [Concomitant]
  6. FINASTERIDE(FINASTERIDE) [Concomitant]
  7. ZOMETA (ZOLEDRONIC ACID) [Concomitant]
  8. ZOLOFT (SERTRALINE HYDROCHLORIDE) [Concomitant]
  9. AMIODARONE(AMIDOARONE) [Concomitant]
  10. DECADRON (DEXAMETHASONE) [Concomitant]
  11. NEXIUM (ESOMEPRAZOLE) [Concomitant]
  12. ASTELIN (AZELASTINE HYDROCHLORIDE) [Concomitant]
  13. NORVASC (AMLODIPINE BESILATE) [Concomitant]
  14. XALATIN (LATANOPROST) [Concomitant]
  15. COUMADIN (WARFRIN SODIUM) [Concomitant]
  16. IMODIUM (LOPERAMIDE HYDROCHLORIDE) (LOPERAMIDE) [Concomitant]
  17. OXYCONTIN (OYCODONE HYDROCHLORIIDE) [Concomitant]
  18. KLOR-CON (POTASSIUM CHLORIDE) [Concomitant]
  19. METOPROLOL (METOPROLOL) [Concomitant]

REACTIONS (2)
  - Haemorrhoidal haemorrhage [None]
  - Platelet count decreased [None]
